FAERS Safety Report 22108114 (Version 2)
Quarter: 2023Q2

REPORT INFORMATION
  Report Type: Spontaneous
  Country: US (occurrence: US)
  Receive Date: 20230317
  Receipt Date: 20230417
  Transmission Date: 20230722
  Serious: No
  Sender: FDA-Public Use
  Company Number: US-SANOFI-01534262

PATIENT
  Age: 64 Year
  Sex: Female
  Weight: 136 kg

DRUGS (13)
  1. DUPIXENT [Suspect]
     Active Substance: DUPILUMAB
     Indication: Dermatitis
     Dosage: 300 MG, QOW
     Dates: start: 2022
  2. VALACYCLOVIR [Concomitant]
     Active Substance: VALACYCLOVIR HYDROCHLORIDE
     Indication: Dermatitis
     Dosage: 500 MG, QD
     Route: 048
  3. BUPROPION HYDROCHLORIDE [Concomitant]
     Active Substance: BUPROPION HYDROCHLORIDE
     Indication: Dermatitis
     Dosage: 200 MG, QD
     Route: 048
  4. NASACORT [Concomitant]
     Active Substance: TRIAMCINOLONE ACETONIDE
     Indication: Hypersensitivity
     Dosage: 55 UG, QD (55 MCG 2 SPRAYS/NOSTRII/DAY)
     Route: 045
  5. HYDROCORTISONE [Concomitant]
     Active Substance: HYDROCORTISONE
     Indication: Dermatitis
     Dosage: 2.5 %, PRN
     Route: 061
  6. PIMECROLIMUS [Concomitant]
     Active Substance: PIMECROLIMUS
     Indication: Dermatitis
     Dosage: 1 %, PRN
     Route: 061
  7. MUPIROCIN [Concomitant]
     Active Substance: MUPIROCIN
     Indication: Dermatitis
     Dosage: 2% OINTMENT AS NEEDED FOR BREAKS IN SKIN
     Route: 061
  8. TACROLIMUS [Concomitant]
     Active Substance: TACROLIMUS
     Dosage: UNK
  9. MOMETASONE [Concomitant]
     Active Substance: MOMETASONE
  10. CLOBETASOL [Concomitant]
     Active Substance: CLOBETASOL
  11. VITAMIN D NOS [Concomitant]
     Active Substance: VITAMIN D NOS
     Dosage: UNK
  12. FISH OIL [Concomitant]
     Active Substance: FISH OIL
     Dosage: GUMMIES
  13. PROBIOTICS NOS [Concomitant]
     Active Substance: PROBIOTICS NOS

REACTIONS (7)
  - Erythema [Recovered/Resolved]
  - Dry skin [Recovered/Resolved]
  - Eyelids pruritus [Recovered/Resolved]
  - Angular cheilitis [Recovered/Resolved]
  - Therapeutic response shortened [Unknown]
  - Accidental exposure to product [Unknown]
  - Product use in unapproved indication [Unknown]

NARRATIVE: CASE EVENT DATE: 20220101
